FAERS Safety Report 13199597 (Version 1)
Quarter: 2017Q1

REPORT INFORMATION
  Report Type: Spontaneous
  Country: CH (occurrence: CH)
  Receive Date: 20170208
  Receipt Date: 20170208
  Transmission Date: 20170428
  Serious: Yes (Disabling, Congenital Anomaly, Other)
  Sender: FDA-Public Use
  Company Number: CH-ABBVIE-17P-151-1867145-00

PATIENT

DRUGS (1)
  1. DEPAKINE CHRONO [Suspect]
     Active Substance: VALPROATE SODIUM
     Indication: MATERNAL EXPOSURE TIMING UNSPECIFIED
     Route: 064

REACTIONS (25)
  - Coordination abnormal [Not Recovered/Not Resolved]
  - Hypospadias [Recovered/Resolved]
  - Speech disorder developmental [Unknown]
  - Foetal exposure during pregnancy [Unknown]
  - Infection [Unknown]
  - Motor developmental delay [Not Recovered/Not Resolved]
  - Drug withdrawal syndrome neonatal [Unknown]
  - Speech disorder [Unknown]
  - Foetal monitoring abnormal [Unknown]
  - Foetal anticonvulsant syndrome [Not Recovered/Not Resolved]
  - Autism [Not Recovered/Not Resolved]
  - Psychomotor hyperactivity [Unknown]
  - Dysmorphism [Not Recovered/Not Resolved]
  - Neonatal asphyxia [Unknown]
  - Aggression [Unknown]
  - Neurodevelopmental disorder [Not Recovered/Not Resolved]
  - Atrial septal defect [Recovering/Resolving]
  - Acute respiratory distress syndrome [Unknown]
  - Muscle rigidity [Unknown]
  - Aphasia [Unknown]
  - Opisthotonus [Unknown]
  - Speech sound disorder [Unknown]
  - Tremor [Unknown]
  - Reduced facial expression [Unknown]
  - Mental impairment [Unknown]

NARRATIVE: CASE EVENT DATE: 2010
